FAERS Safety Report 6739491-X (Version None)
Quarter: 2010Q2

REPORT INFORMATION
  Report Type: 
  Country: None (occurrence: None)
  Receive Date: 20100525
  Receipt Date: 20100513
  Transmission Date: 20101027
  Serious: Yes (Other)
  Sender: FDA-Public Use
  Company Number: GR-ELI_LILLY_AND_COMPANY-GR201005003593

PATIENT
  Age: 60 Year
  Sex: Female

DRUGS (1)
  1. LADOSE [Suspect]
     Indication: DEPRESSION
     Dosage: 20 MG, DAILY (1/D)
     Route: 048
     Dates: start: 20100301

REACTIONS (1)
  - ALOPECIA [None]
